FAERS Safety Report 10247456 (Version 1)
Quarter: 2014Q2

REPORT INFORMATION
  Report Type: Spontaneous
  Country: US (occurrence: US)
  Receive Date: 20140619
  Receipt Date: 20140619
  Transmission Date: 20141212
  Serious: Yes (Hospitalization)
  Sender: FDA-Public Use
  Company Number: US-BRISTOL-MYERS SQUIBB COMPANY-20979019

PATIENT
  Age: 75 Year
  Sex: Female

DRUGS (2)
  1. BYDUREON [Suspect]
     Route: 058
     Dates: start: 2012, end: 2012
  2. METFORMIN [Concomitant]
     Indication: DIABETES MELLITUS

REACTIONS (4)
  - Dehydration [Unknown]
  - Diarrhoea [Unknown]
  - Vomiting [Unknown]
  - Back pain [Unknown]
